FAERS Safety Report 20959564 (Version 2)
Quarter: 2022Q2

REPORT INFORMATION
  Report Type: Report from Study
  Country: CA (occurrence: CA)
  Receive Date: 20220614
  Receipt Date: 20220628
  Transmission Date: 20220721
  Serious: Yes (Hospitalization)
  Sender: FDA-Public Use
  Company Number: CA-Taiho Oncology Inc-EU-2022-01501

PATIENT
  Age: 52 Year
  Sex: Female

DRUGS (2)
  1. LONSURF [Suspect]
     Active Substance: TIPIRACIL HYDROCHLORIDE\TRIFLURIDINE
     Indication: Colorectal cancer metastatic
     Dosage: CURRENT CYCLE, DOSAGE AND FREQUENCY UNKNOWN
     Route: 048
     Dates: start: 20220607
  2. BRAFTOVI/CETUXIMAB [Concomitant]

REACTIONS (1)
  - Renal disorder [Recovering/Resolving]
